FAERS Safety Report 7010570-5 (Version None)
Quarter: 2010Q3

REPORT INFORMATION
  Report Type: 
  Country: None (occurrence: None)
  Receive Date: 20100923
  Receipt Date: 20100915
  Transmission Date: 20110219
  Serious: Yes (Death, Other)
  Sender: FDA-Public Use
  Company Number: US-AMGEN-QUU435265

PATIENT
  Sex: Female
  Weight: 62.7 kg

DRUGS (1)
  1. NPLATE [Suspect]
     Indication: IDIOPATHIC THROMBOCYTOPENIC PURPURA
     Route: 058
     Dates: start: 20100517, end: 20100608

REACTIONS (8)
  - AZOTAEMIA [None]
  - DEATH [None]
  - DEEP VEIN THROMBOSIS [None]
  - MALNUTRITION [None]
  - MULTIMORBIDITY [None]
  - MYOPATHY [None]
  - PNEUMONIA [None]
  - SEPSIS [None]
